FAERS Safety Report 12569187 (Version 2)
Quarter: 2016Q3

REPORT INFORMATION
  Report Type: Spontaneous
  Country: US (occurrence: US)
  Receive Date: 20160719
  Receipt Date: 20160721
  Transmission Date: 20161109
  Serious: Yes (Other)
  Sender: FDA-Public Use
  Company Number: US-SUN PHARMACEUTICAL INDUSTRIES LTD-2016US-120218

PATIENT
  Sex: Female

DRUGS (2)
  1. BEVACIZAMAB [Suspect]
     Active Substance: BEVACIZUMAB
     Indication: OVARIAN CLEAR CELL CARCINOMA
     Dosage: UNK
     Route: 065
     Dates: start: 2015
  2. LIPODOX [Suspect]
     Active Substance: DOXORUBICIN HYDROCHLORIDE
     Indication: OVARIAN CLEAR CELL CARCINOMA
     Dosage: UNK
     Route: 065
     Dates: start: 2015

REACTIONS (1)
  - Drug ineffective [Unknown]

NARRATIVE: CASE EVENT DATE: 2015
